FAERS Safety Report 13078417 (Version 14)
Quarter: 2019Q2

REPORT INFORMATION
  Report Type: Spontaneous
  Country: US (occurrence: US)
  Receive Date: 20170102
  Receipt Date: 20190409
  Transmission Date: 20190711
  Serious: Yes (Hospitalization, Other)
  Sender: FDA-Public Use
  Company Number: US-ASTRAZENECA-2016SF38061

PATIENT
  Age: 549 Month
  Sex: Female
  Weight: 63.5 kg

DRUGS (63)
  1. GABAPENTIN. [Concomitant]
     Active Substance: GABAPENTIN
     Indication: VESTIBULAR DISORDER
     Route: 048
     Dates: start: 201510
  2. COMBIVENT [Concomitant]
     Active Substance: ALBUTEROL SULFATE\IPRATROPIUM BROMIDE
     Route: 055
     Dates: start: 20150420
  3. DUONIB [Concomitant]
     Dates: start: 20150629
  4. GARLIC. [Concomitant]
     Active Substance: GARLIC
     Dates: start: 20150629
  5. MAGNESIUM [Concomitant]
     Active Substance: MAGNESIUM
     Dates: start: 20150629
  6. NYSTATIN. [Concomitant]
     Active Substance: NYSTATIN
     Dates: start: 20150629
  7. PROBIOTIC FORMULA [Concomitant]
     Dates: start: 20150629
  8. SINGULAIR [Concomitant]
     Active Substance: MONTELUKAST SODIUM
     Dates: start: 20150420, end: 20170118
  9. PROBIOTIC [Concomitant]
     Active Substance: PROBIOTICS NOS
  10. VITAMIN D3 [Concomitant]
     Active Substance: CHOLECALCIFEROL
     Dates: start: 20150629
  11. PROLIA [Concomitant]
     Active Substance: DENOSUMAB
     Dates: start: 20150629
  12. HYDROCODONE [Concomitant]
     Active Substance: HYDROCODONE
  13. DIAZEPAM. [Concomitant]
     Active Substance: DIAZEPAM
  14. TAGRISSO [Suspect]
     Active Substance: OSIMERTINIB
     Indication: LUNG CARCINOMA CELL TYPE UNSPECIFIED STAGE I
     Route: 048
     Dates: start: 201609
  15. AMITRIPTYLINE [Concomitant]
     Active Substance: AMITRIPTYLINE
     Indication: VESTIBULAR DISORDER
     Route: 048
     Dates: end: 201611
  16. NORTRIPTYLINE HYDROCHLORIDE. [Concomitant]
     Active Substance: NORTRIPTYLINE HYDROCHLORIDE
     Indication: VESTIBULAR DISORDER
     Route: 048
     Dates: start: 201611
  17. TOLTERODINE [Concomitant]
     Active Substance: TOLTERODINE
     Indication: URINARY INCONTINENCE
     Route: 048
     Dates: start: 201612
  18. NORTRIPTYLINE HYDROCHLORIDE. [Concomitant]
     Active Substance: NORTRIPTYLINE HYDROCHLORIDE
     Dates: start: 20170118
  19. TOLTERODINE L-TARTRATE [Concomitant]
     Active Substance: TOLTERODINE TARTRATE
     Route: 048
     Dates: start: 20170118
  20. CYMBALTA [Concomitant]
     Active Substance: DULOXETINE HYDROCHLORIDE
     Route: 048
     Dates: start: 20171026
  21. PROVENTIL HSA [Concomitant]
     Dates: start: 20150420
  22. PEPCID [Concomitant]
     Active Substance: FAMOTIDINE
  23. MECLOZINE HYDROCHLORIDE [Concomitant]
     Active Substance: MECLOZINE DIHYDROCHLORIDE
  24. TAGRISSO [Suspect]
     Active Substance: OSIMERTINIB
     Indication: LUNG CARCINOMA CELL TYPE UNSPECIFIED STAGE I
     Route: 048
     Dates: start: 20150422
  25. TAGRISSO [Suspect]
     Active Substance: OSIMERTINIB
     Indication: NON-SMALL CELL LUNG CANCER METASTATIC
     Route: 048
     Dates: start: 201609
  26. FLOVENT [Concomitant]
     Active Substance: FLUTICASONE PROPIONATE
     Dates: start: 20170118
  27. HYDROCODONE BITARTRATE AND ACETAMINOPHEN [Concomitant]
     Active Substance: ACETAMINOPHEN\HYDROCODONE BITARTRATE
     Route: 048
     Dates: start: 20170118
  28. IRON [Concomitant]
     Active Substance: IRON
     Dates: start: 20150629
  29. MELATONIN [Concomitant]
     Active Substance: MELATONIN
     Route: 048
     Dates: start: 20150629
  30. MILK THISTLE [Concomitant]
     Active Substance: DIETARY SUPPLEMENT\HERBALS\MILK THISTLE
     Route: 048
     Dates: start: 20150629
  31. TAGRISSO [Suspect]
     Active Substance: OSIMERTINIB
     Indication: LUNG CARCINOMA CELL TYPE UNSPECIFIED STAGE I
     Route: 048
     Dates: start: 20170120
  32. TAGRISSO [Suspect]
     Active Substance: OSIMERTINIB
     Indication: NON-SMALL CELL LUNG CANCER METASTATIC
     Route: 048
     Dates: start: 20170120
  33. AMITRIPTYLINE [Concomitant]
     Active Substance: AMITRIPTYLINE
     Indication: VESTIBULAR DISORDER
     Route: 048
  34. GABAPENTIN. [Concomitant]
     Active Substance: GABAPENTIN
     Indication: VESTIBULAR DISORDER
     Route: 048
     Dates: start: 2015
  35. GABAPENTIN. [Concomitant]
     Active Substance: GABAPENTIN
     Indication: VESTIBULAR DISORDER
     Route: 048
     Dates: start: 201512
  36. GABAPENTIN. [Concomitant]
     Active Substance: GABAPENTIN
     Indication: VESTIBULAR DISORDER
     Dosage: 800.0MG AS REQUIRED
     Route: 048
     Dates: start: 20151231
  37. BACLOFEN. [Concomitant]
     Active Substance: BACLOFEN
     Indication: MUSCLE SPASMS
     Route: 048
     Dates: start: 2015
  38. XANAX [Concomitant]
     Active Substance: ALPRAZOLAM
     Indication: PANIC ATTACK
     Dosage: 0.5MG AS REQUIRED
     Route: 048
     Dates: start: 2015
  39. CALCIUM [Concomitant]
     Active Substance: CALCIUM
     Route: 048
     Dates: start: 20150629
  40. POTASSIUM [Concomitant]
     Active Substance: POTASSIUM
     Dates: start: 20170118
  41. VITAMIN C [Concomitant]
     Active Substance: ASCORBIC ACID
     Route: 048
  42. ZOFRAN [Concomitant]
     Active Substance: ONDANSETRON HYDROCHLORIDE
     Dates: start: 20150916
  43. VITAMIN B COMPLEX [Concomitant]
     Active Substance: CYANOCOBALAMIN\DEXPANTHENOL\NIACINAMIDE\PYRIDOXINE HYDROCHLORIDE\RIBOFLAVIN 5^-PHOSPHATE SODIUM\THIAMINE HYDROCHLORIDE\VITAMIN B COMPLEX
     Dates: start: 20150629
  44. GUAIFENESIN. [Concomitant]
     Active Substance: GUAIFENESIN
  45. KEFLEX [Concomitant]
     Active Substance: CEPHALEXIN
  46. CHOLESTYRAMINE. [Concomitant]
     Active Substance: CHOLESTYRAMINE
  47. TARCEVA [Concomitant]
     Active Substance: ERLOTINIB HYDROCHLORIDE
     Indication: NEOPLASM MALIGNANT
     Dosage: UNKNOWN
     Route: 065
  48. VITAMIN B COMPLEX [Concomitant]
     Active Substance: CYANOCOBALAMIN\DEXPANTHENOL\NIACINAMIDE\PYRIDOXINE HYDROCHLORIDE\RIBOFLAVIN 5^-PHOSPHATE SODIUM\THIAMINE HYDROCHLORIDE\VITAMIN B COMPLEX
     Dosage: UNKNOWN
     Route: 065
  49. MULTI VITAMIN [Concomitant]
     Active Substance: VITAMINS
     Dates: start: 20150629
  50. DOXYCYCLINE MONOHYDRATE [Concomitant]
     Active Substance: DOXYCYCLINE
  51. TAGRISSO [Suspect]
     Active Substance: OSIMERTINIB
     Indication: NON-SMALL CELL LUNG CANCER METASTATIC
     Route: 048
     Dates: start: 20150422
  52. GABAPENTIN. [Concomitant]
     Active Substance: GABAPENTIN
     Indication: VESTIBULAR DISORDER
     Dosage: 800.0MG AS REQUIRED
     Route: 048
     Dates: start: 2016
  53. BACLOFEN. [Concomitant]
     Active Substance: BACLOFEN
     Indication: MUSCLE SPASMS
     Route: 048
     Dates: start: 20170118
  54. XANAX [Concomitant]
     Active Substance: ALPRAZOLAM
     Indication: PANIC ATTACK
     Dosage: 0.25MG AS REQUIRED
     Route: 048
     Dates: start: 201508
  55. XANAX [Concomitant]
     Active Substance: ALPRAZOLAM
     Indication: PANIC ATTACK
     Dosage: AS REQUIRED
     Route: 048
     Dates: start: 20150916
  56. XGEVA [Concomitant]
     Active Substance: DENOSUMAB
     Indication: METASTASES TO BONE
     Dosage: EVERY SIX WEEKS
     Route: 030
     Dates: start: 2016
  57. ALBUTEROL SULFATE. [Concomitant]
     Active Substance: ALBUTEROL SULFATE
     Dosage: UNKNOWN
     Route: 065
     Dates: start: 20150629
  58. L-LYSINE [Concomitant]
     Active Substance: LYSINE
     Dates: start: 20150629
  59. QVAR [Concomitant]
     Active Substance: BECLOMETHASONE DIPROPIONATE
     Dates: start: 20150420, end: 20170118
  60. VALIUM [Concomitant]
     Active Substance: DIAZEPAM
     Indication: TINNITUS
     Dosage: 5.0MG AS REQUIRED
     Route: 048
     Dates: start: 2016
  61. XGEVA [Concomitant]
     Active Substance: DENOSUMAB
     Indication: METASTASES TO BONE
     Dosage: EVERY SIX WEEKS
     Route: 030
     Dates: start: 20150629
  62. FLONASE [Concomitant]
     Active Substance: FLUTICASONE PROPIONATE
     Dates: start: 20150420, end: 20170118
  63. RALOXIFENE HYDROCHLORIDE. [Concomitant]
     Active Substance: RALOXIFENE HYDROCHLORIDE

REACTIONS (38)
  - Muscle spasms [Unknown]
  - Sensory loss [Unknown]
  - Tooth loss [Unknown]
  - Pain [Unknown]
  - Incontinence [Unknown]
  - Dehydration [Unknown]
  - Pancreatitis [Unknown]
  - Tooth injury [Unknown]
  - Tinnitus [Unknown]
  - Jaw fracture [Unknown]
  - Hand fracture [Unknown]
  - Vertigo [Unknown]
  - Pneumonia [Unknown]
  - Onychoclasis [Unknown]
  - Trichorrhexis [Not Recovered/Not Resolved]
  - Product dose omission [Recovered/Resolved]
  - Road traffic accident [Unknown]
  - Face injury [Unknown]
  - Head injury [Unknown]
  - Suicidal ideation [Unknown]
  - Malignant neoplasm progression [Unknown]
  - Back pain [Unknown]
  - Tooth disorder [Unknown]
  - Feeling abnormal [Unknown]
  - Skin exfoliation [Unknown]
  - Intervertebral disc protrusion [Unknown]
  - Rash pustular [Recovering/Resolving]
  - Skin laceration [Unknown]
  - Nasopharyngitis [Unknown]
  - Sinusitis [Unknown]
  - Vth nerve injury [Unknown]
  - Dysphonia [Unknown]
  - Localised infection [Unknown]
  - Abdominal discomfort [Unknown]
  - Skin fissures [Unknown]
  - Vestibular disorder [Unknown]
  - Pneumothorax [Not Recovered/Not Resolved]
  - Weight increased [Not Recovered/Not Resolved]

NARRATIVE: CASE EVENT DATE: 201609
